FAERS Safety Report 4421149-3 (Version None)
Quarter: 2004Q3

REPORT INFORMATION
  Report Type: 
  Country: None (occurrence: None)
  Receive Date: 20040804
  Receipt Date: 20040727
  Transmission Date: 20050211
  Serious: Yes (Hospitalization, Other)
  Sender: FDA-Public Use
  Company Number: 2004036337

PATIENT
  Age: 27 Year
  Sex: Female

DRUGS (2)
  1. UNASYN [Suspect]
     Indication: ESCHERICHIA URINARY TRACT INFECTION
     Dosage: 1.5 GRAM
     Dates: start: 20031201, end: 20031201
  2. UNASYN [Suspect]
     Indication: ESCHERICHIA URINARY TRACT INFECTION
     Dosage: ORAL
     Route: 048

REACTIONS (3)
  - ANAPHYLACTIC SHOCK [None]
  - CARDIAC ARREST [None]
  - DRUG EXPOSURE DURING PREGNANCY [None]
